FAERS Safety Report 15074980 (Version 2)
Quarter: 2023Q4

REPORT INFORMATION
  Report Type: Spontaneous
  Country: US (occurrence: US)
  Receive Date: 20180627
  Receipt Date: 20231128
  Transmission Date: 20240110
  Serious: Yes (Other)
  Sender: FDA-Public Use
  Company Number: US-SAOL THERAPEUTICS-2017SAO03399

PATIENT
  Sex: Female

DRUGS (3)
  1. BACLOFEN [Suspect]
     Active Substance: BACLOFEN
     Dosage: 50.541 ?G, \DAY
     Route: 037
  2. BUPIVACAINE [Suspect]
     Active Substance: BUPIVACAINE
     Dosage: 12.762 MG, \DAY
     Route: 037
  3. DILAUDID [Suspect]
     Active Substance: HYDROMORPHONE HYDROCHLORIDE
     Dosage: 12.508 MG, \DAY
     Route: 037

REACTIONS (8)
  - Seizure [Unknown]
  - Tachycardia [Unknown]
  - Therapeutic product ineffective for unapproved indication [Unknown]
  - Pain [Unknown]
  - Diarrhoea [Unknown]
  - Anger [Unknown]
  - Unevaluable event [Unknown]
  - Device failure [Unknown]

NARRATIVE: CASE EVENT DATE: 20170101
